FAERS Safety Report 9698011 (Version 2)
Quarter: 2013Q4

REPORT INFORMATION
  Report Type: Spontaneous
  Country: ES (occurrence: IT)
  Receive Date: 20131120
  Receipt Date: 20131218
  Transmission Date: 20140711
  Serious: Yes (Other)
  Sender: FDA-Public Use
  Company Number: IT-FRI-1000051550

PATIENT
  Age: 64 Year
  Sex: Male

DRUGS (7)
  1. ACLIDINIUM [Suspect]
     Indication: CHRONIC OBSTRUCTIVE PULMONARY DISEASE
     Dosage: 2 DF
     Route: 055
     Dates: start: 20131024, end: 20131025
  2. ACLIDINIUM [Suspect]
     Indication: CHRONIC OBSTRUCTIVE PULMONARY DISEASE
  3. DELTACORTENE [Concomitant]
     Indication: CHRONIC OBSTRUCTIVE PULMONARY DISEASE
     Dosage: 25 MG IN DECREASING DOSES EVERY 3 DAYS
     Route: 048
     Dates: start: 201305
  4. UNIDROX [Concomitant]
     Indication: CHRONIC OBSTRUCTIVE PULMONARY DISEASE
     Dosage: 600 MG
     Route: 048
     Dates: start: 201305
  5. PANTOPRAZOLE [Concomitant]
  6. SALMETEROL/FLUTICASONE [Concomitant]
  7. FUROSEMIDE [Concomitant]

REACTIONS (2)
  - Generalised oedema [Recovered/Resolved]
  - Pruritus [Recovered/Resolved]
